FAERS Safety Report 5521389-6 (Version None)
Quarter: 2007Q4

REPORT INFORMATION
  Report Type: 
  Country: None (occurrence: None)
  Receive Date: 20071119
  Receipt Date: 20071109
  Transmission Date: 20080405
  Serious: Yes (Hospitalization)
  Sender: FDA-Public Use
  Company Number: US-ABBOTT-07P-163-0424205-00

PATIENT
  Sex: Male
  Weight: 105 kg

DRUGS (4)
  1. DEPAKOTE [Suspect]
     Indication: SIMPLE PARTIAL SEIZURES
     Dosage: 500MG THREE TIMES A DAY PLUS 250MG AT BEDTIME
     Route: 048
     Dates: start: 20050101
  2. TOPIRAMATE [Concomitant]
     Indication: CONVULSION
     Route: 048
  3. ATORVASTATIN CALCIUM [Concomitant]
     Indication: DRUG USE FOR UNKNOWN INDICATION
     Route: 048
  4. LEVOTHYROXINE SODIUM [Concomitant]
     Indication: DRUG USE FOR UNKNOWN INDICATION
     Route: 048

REACTIONS (3)
  - ABNORMAL BEHAVIOUR [None]
  - PLATELET COUNT DECREASED [None]
  - WHITE BLOOD CELL COUNT DECREASED [None]
